FAERS Safety Report 16782008 (Version 5)
Quarter: 2019Q4

REPORT INFORMATION
  Report Type: Report from Study
  Country: JP (occurrence: JP)
  Receive Date: 20190906
  Receipt Date: 20191211
  Transmission Date: 20200122
  Serious: Yes (Death, Other)
  Sender: FDA-Public Use
  Company Number: JP-PFIZER INC-2019387798

PATIENT
  Age: 7 Month
  Sex: Male
  Weight: 4 kg

DRUGS (10)
  1. ALBUMIN [Concomitant]
     Active Substance: ALBUMIN HUMAN
     Indication: LYMPHANGIOMA
     Dosage: UNK
     Route: 042
     Dates: start: 20190810
  2. DOPAMINE [Concomitant]
     Active Substance: DOPAMINE HYDROCHLORIDE
     Dosage: UNK
     Route: 065
     Dates: start: 20190810
  3. VANCOMYCIN [Concomitant]
     Active Substance: VANCOMYCIN
     Dosage: UNK
     Route: 065
     Dates: start: 20190726, end: 20190804
  4. CEFOTIAM [Concomitant]
     Active Substance: CEFOTIAM
     Dosage: UNK
     Route: 065
     Dates: start: 20190726, end: 20190730
  5. KAYTWO [Concomitant]
     Active Substance: MENATETRENONE
     Indication: PROPHYLAXIS
     Dosage: UNK
     Route: 065
     Dates: start: 20190726, end: 20190805
  6. CALCICOL [Concomitant]
     Active Substance: CALCIUM GLUCONATE
     Dosage: UNK
     Route: 065
     Dates: end: 20190810
  7. THYRADIN [Concomitant]
     Active Substance: LEVOTHYROXINE
     Dosage: UNK
     Route: 048
     Dates: end: 20190810
  8. MEYLON [Concomitant]
     Active Substance: SODIUM BICARBONATE
     Dosage: UNK
     Route: 065
     Dates: start: 20190810
  9. RAPALIMUS [Suspect]
     Active Substance: SIROLIMUS
     Indication: LYMPHANGIOMA
     Dosage: 0.6 MG, 1X/DAY
     Route: 048
     Dates: start: 20190726, end: 20190806
  10. INDERAL [Concomitant]
     Active Substance: PROPRANOLOL HYDROCHLORIDE
     Dosage: UNK
     Route: 048
     Dates: start: 20190810

REACTIONS (8)
  - Product administered to patient of inappropriate age [Unknown]
  - Septic shock [Fatal]
  - Stomatitis [Fatal]
  - Exfoliative rash [Fatal]
  - Drug level increased [Unknown]
  - Gastric mucosal lesion [Fatal]
  - Impaired healing [Fatal]
  - Wrong technique in product usage process [Unknown]

NARRATIVE: CASE EVENT DATE: 20190726
